FAERS Safety Report 7746055-8 (Version None)
Quarter: 2011Q3

REPORT INFORMATION
  Report Type: 
  Country: None (occurrence: None)
  Receive Date: 20110913
  Receipt Date: 20110831
  Transmission Date: 20111222
  Serious: No
  Sender: FDA-Public Use
  Company Number: US-B.I. PHARMACEUTICALS,INC./RIDGEFIELD-2011-BP-21302BP

PATIENT
  Age: 88 Year
  Sex: Female

DRUGS (8)
  1. DIGOXIN [Concomitant]
     Indication: ATRIAL FIBRILLATION
     Dosage: 0.125 MG
     Route: 048
     Dates: start: 20100101
  2. PRED MILD [Concomitant]
     Indication: PROPHYLAXIS AGAINST TRANSPLANT REJECTION
     Route: 047
     Dates: start: 19930101
  3. NORVASC [Concomitant]
     Indication: CARDIAC DISORDER
     Dosage: 5 MG
     Route: 048
     Dates: start: 20100101
  4. DORZOLAMIDE HYDROCHLORIDE AND TIMOLOL MALEATE [Concomitant]
     Indication: PROPHYLAXIS AGAINST TRANSPLANT REJECTION
     Route: 047
     Dates: start: 19930101
  5. CALCIUM CARBONATE [Concomitant]
     Indication: ROUTINE HEALTH MAINTENANCE
     Dosage: 1200 MG
     Route: 048
     Dates: start: 20110801
  6. TYLENOL-500 [Concomitant]
     Indication: PAIN IN EXTREMITY
     Route: 048
     Dates: start: 20110701
  7. PRADAXA [Suspect]
     Indication: ATRIAL FIBRILLATION
     Dosage: 300 MG
     Route: 048
     Dates: start: 20110701
  8. VITAMIN D [Concomitant]
     Indication: ROUTINE HEALTH MAINTENANCE
     Dosage: 2000 U
     Route: 048
     Dates: start: 20110801

REACTIONS (1)
  - PAIN IN EXTREMITY [None]
